FAERS Safety Report 16852941 (Version 1)
Quarter: 2019Q3

REPORT INFORMATION
  Report Type: Spontaneous
  Country: US (occurrence: US)
  Receive Date: 20190925
  Receipt Date: 20190925
  Transmission Date: 20191005
  Serious: Yes (Hospitalization)
  Sender: FDA-Public Use
  Company Number: US-MATRIXX INITIATIVES, INC.-2074918

PATIENT
  Age: 55 Year
  Sex: Female
  Weight: 81.82 kg

DRUGS (3)
  1. ALBUTEROL. [Concomitant]
     Active Substance: ALBUTEROL
  2. NUMEROUS UNDISCLOSED MEDICATIONS [Concomitant]
  3. ZICAM COLD REMEDY [Suspect]
     Active Substance: HOMEOPATHICS\ZINC ACETATE\ZINC GLUCONATE
     Route: 048
     Dates: start: 20190916, end: 20190916

REACTIONS (2)
  - Dysphagia [Recovered/Resolved]
  - Swollen tongue [Recovered/Resolved]
